FAERS Safety Report 9055798 (Version 3)
Quarter: 2013Q3

REPORT INFORMATION
  Report Type: Spontaneous
  Country: FR (occurrence: FR)
  Receive Date: 20130206
  Receipt Date: 20130708
  Transmission Date: 20140515
  Serious: Yes (Hospitalization, Other)
  Sender: FDA-Public Use
  Company Number: FR-GILEAD-2013-0069061

PATIENT
  Age: 49 Year
  Sex: Male

DRUGS (6)
  1. TRUVADA [Suspect]
     Indication: HIV INFECTION
     Dosage: UNK
     Route: 048
     Dates: start: 201105, end: 20121009
  2. VIRAMUNE [Suspect]
     Indication: HIV INFECTION
     Dosage: 400 MG, UNK
     Route: 048
     Dates: start: 20120621, end: 20121009
  3. BACTRIM [Suspect]
     Indication: HIV INFECTION
     Dosage: 1 DF, QD
     Route: 048
     Dates: start: 201105
  4. UVEDOSE [Concomitant]
     Indication: PRODUCT USED FOR UNKNOWN INDICATION
     Dosage: 1 DF, UNK
  5. LITHIODERM [Concomitant]
     Indication: SEBORRHOEIC DERMATITIS
  6. KETODERM                           /00532501/ [Concomitant]
     Indication: PRODUCT USED FOR UNKNOWN INDICATION

REACTIONS (1)
  - Cholestasis [Not Recovered/Not Resolved]
